FAERS Safety Report 9394933 (Version 2)
Quarter: 2013Q3

REPORT INFORMATION
  Report Type: Spontaneous
  Country: US (occurrence: US)
  Receive Date: 20130711
  Receipt Date: 20130718
  Transmission Date: 20140515
  Serious: Yes (Death)
  Sender: FDA-Public Use
  Company Number: US-ELI_LILLY_AND_COMPANY-US201307000457

PATIENT
  Age: 56 Year
  Sex: Female
  Weight: 121.54 kg

DRUGS (8)
  1. PROZAC [Suspect]
     Indication: DEPRESSION
     Dosage: 20 MG, TID
     Dates: start: 2009, end: 20130612
  2. OXYCODONE [Concomitant]
  3. GABAPENTIN [Concomitant]
  4. AMBIEN [Concomitant]
  5. CYCLOBENZAPRINE [Concomitant]
  6. DOXAZOSIN [Concomitant]
  7. PRAVASTATIN [Concomitant]
  8. BABY ASPIRIN [Concomitant]

REACTIONS (2)
  - Cardiac arrest [Fatal]
  - Myocardial infarction [Fatal]
